FAERS Safety Report 6772752-7 (Version None)
Quarter: 2010Q2

REPORT INFORMATION
  Report Type: 
  Country: None (occurrence: None)
  Receive Date: 20100614
  Receipt Date: 20100601
  Transmission Date: 20101027
  Serious: Yes (Hospitalization, Other)
  Sender: FDA-Public Use
  Company Number: 7003932

PATIENT
  Age: 34 Year
  Sex: Female
  Weight: 57 kg

DRUGS (5)
  1. REBIF [Suspect]
     Indication: DRUG USE FOR UNKNOWN INDICATION
     Dosage: 44 MCG, 3 IN1 WK, SUBCUTANEOUS
     Route: 058
     Dates: start: 20100303
  2. CYMBALTA [Concomitant]
  3. SEROQUEL [Concomitant]
  4. DARVOCET [Concomitant]
  5. PREDNISONE TAB [Concomitant]

REACTIONS (6)
  - DEPRESSION [None]
  - FATIGUE [None]
  - FIBROMYALGIA [None]
  - HEPATIC ENZYME ABNORMAL [None]
  - INJECTION SITE HAEMATOMA [None]
  - OPTIC NEURITIS [None]
